FAERS Safety Report 4521617-X (Version None)
Quarter: 2004Q4

REPORT INFORMATION
  Report Type: 
  Country: None (occurrence: None)
  Receive Date: 20041209
  Receipt Date: 20041129
  Transmission Date: 20050328
  Serious: Yes (Other)
  Sender: FDA-Public Use
  Company Number: US-JNJFOC-20041105211

PATIENT
  Sex: Female
  Weight: 80.29 kg

DRUGS (14)
  1. REMICADE [Suspect]
     Indication: RHEUMATOID ARTHRITIS
     Route: 042
  2. GOLD [Concomitant]
     Dates: start: 20000106
  3. PLAQUENIL [Concomitant]
     Dates: start: 20000103
  4. PREDNISONE [Concomitant]
     Dates: start: 19970201
  5. METHOTREXATE [Concomitant]
  6. INSULIN [Concomitant]
     Dates: start: 20040401
  7. SYNTHROID [Concomitant]
  8. TUMS ULTRA [Concomitant]
  9. VITAMIN A [Concomitant]
  10. PRAVACHOL [Concomitant]
  11. PRILOSEC [Concomitant]
  12. TYLENOL (CAPLET) [Concomitant]
     Dosage: PRN
  13. FOLIC ACID [Concomitant]
  14. LASIX [Concomitant]

REACTIONS (2)
  - CARDIAC FAILURE CONGESTIVE [None]
  - CARDIOMYOPATHY [None]
